FAERS Safety Report 18420185 (Version 1)
Quarter: 2020Q4

REPORT INFORMATION
  Report Type: Spontaneous
  Country: ES (occurrence: ES)
  Receive Date: 20201023
  Receipt Date: 20201023
  Transmission Date: 20210114
  Serious: Yes (Hospitalization)
  Sender: FDA-Public Use
  Company Number: ES-TEVA-2020-ES-1840341

PATIENT
  Age: 87 Year
  Sex: Female

DRUGS (3)
  1. RISPERIDONA (7201A) [Concomitant]
     Active Substance: RISPERIDONE
     Indication: AGITATION
     Dosage: 1 MILLIGRAM DAILY;
     Route: 048
     Dates: start: 20200602, end: 20200609
  2. LOSARTAN (7157A) [Suspect]
     Active Substance: LOSARTAN
     Indication: HYPERTENSION
     Dosage: 12.5 MILLIGRAM DAILY;
     Route: 048
     Dates: start: 20200602, end: 20200609
  3. FUROSEMIDA (1615A) [Interacting]
     Active Substance: FUROSEMIDE
     Indication: CARDIAC FAILURE
     Dosage: 80 MILLIGRAM DAILY;
     Route: 048
     Dates: start: 20200602, end: 20200609

REACTIONS (2)
  - Drug interaction [Unknown]
  - Acute kidney injury [Recovered/Resolved]

NARRATIVE: CASE EVENT DATE: 20200609
